FAERS Safety Report 5925938-5 (Version None)
Quarter: 2008Q4

REPORT INFORMATION
  Report Type: 
  Country: None (occurrence: None)
  Receive Date: 20081021
  Receipt Date: 20081017
  Transmission Date: 20090506
  Serious: Yes (Hospitalization)
  Sender: FDA-Public Use
  Company Number: US-B.I. PHARMACEUTICALS,INC./RIDGEFIELD-2008-BP-10313BP

PATIENT
  Sex: Male

DRUGS (26)
  1. SPIRIVA [Suspect]
     Indication: BRONCHITIS CHRONIC
     Dosage: 18MCG
     Dates: start: 20060401, end: 20080725
  2. SPIRIVA [Suspect]
     Indication: DYSPNOEA
  3. SPIRIVA [Suspect]
     Indication: INCREASED UPPER AIRWAY SECRETION
  4. MAXZIDE [Concomitant]
     Route: 048
     Dates: start: 20080604
  5. MAXZIDE [Concomitant]
     Dates: start: 20080310
  6. DIGITEK [Concomitant]
     Dosage: .125MG
     Route: 048
     Dates: start: 20080915
  7. CALCIUM [Concomitant]
     Dosage: 1500MG
     Route: 048
     Dates: start: 20070507
  8. VITAMIN D [Concomitant]
     Route: 048
     Dates: start: 20070507
  9. MULTI-VITAMIN [Concomitant]
     Route: 048
     Dates: start: 20011221
  10. TYLENOL [Concomitant]
     Indication: ARTHRALGIA
     Dosage: 325MG
     Route: 048
     Dates: start: 20070507
  11. COUMADIN [Concomitant]
     Dates: start: 20080301
  12. COUMADIN [Concomitant]
     Dates: start: 20080317
  13. ATENOLOL [Concomitant]
     Dosage: 50MG
     Route: 048
     Dates: start: 20070112
  14. LIPITOR [Concomitant]
     Dosage: 10MG
     Route: 048
     Dates: start: 20070112
  15. ASPIRIN [Concomitant]
     Dates: end: 20080304
  16. DICLOFENAC [Concomitant]
     Dosage: 150MG
     Route: 048
     Dates: start: 20080407
  17. DICLOFENAC [Concomitant]
     Dates: start: 20080407
  18. PRILOSEC [Concomitant]
     Dosage: 20MG
     Route: 048
     Dates: start: 20080407
  19. PRILOSEC [Concomitant]
     Dates: start: 20080407
  20. LASIX [Concomitant]
     Dates: start: 20080223, end: 20080306
  21. KLOR-CON [Concomitant]
     Dates: start: 20080223, end: 20080306
  22. AZITHROMYCIN [Concomitant]
     Dates: start: 20080223, end: 20080226
  23. NIASPAN [Concomitant]
     Route: 048
     Dates: start: 20080317
  24. NITROLINGUAL SPRAY TL SOLN [Concomitant]
     Indication: CHEST PAIN
     Route: 060
     Dates: start: 20060125
  25. BONIVA [Concomitant]
     Route: 048
     Dates: start: 20080317
  26. SYNTHROID [Concomitant]
     Dosage: 50MCG
     Route: 048
     Dates: start: 20080604

REACTIONS (5)
  - EYE DISORDER [None]
  - HAEMATOCHEZIA [None]
  - PNEUMONIA [None]
  - VISUAL ACUITY REDUCED [None]
  - VISUAL IMPAIRMENT [None]
